FAERS Safety Report 13860884 (Version 1)
Quarter: 2017Q3

REPORT INFORMATION
  Report Type: Spontaneous
  Country: US (occurrence: US)
  Receive Date: 20170811
  Receipt Date: 20170811
  Transmission Date: 20171127
  Serious: No
  Sender: FDA-Public Use
  Company Number: None

PATIENT
  Age: 9 Year
  Sex: Male
  Weight: 58.29 kg

DRUGS (1)
  1. GUANFACINE 1MG [Suspect]
     Active Substance: GUANFACINE
     Indication: ATTENTION DEFICIT/HYPERACTIVITY DISORDER
     Dates: start: 20170710, end: 20170809

REACTIONS (2)
  - Irritability [None]
  - Lethargy [None]

NARRATIVE: CASE EVENT DATE: 20170809
